FAERS Safety Report 11050064 (Version 1)
Quarter: 2015Q2

REPORT INFORMATION
  Report Type: Spontaneous
  Country: US (occurrence: US)
  Receive Date: 20150420
  Receipt Date: 20150420
  Transmission Date: 20150821
  Serious: No
  Sender: FDA-Public Use
  Company Number: US-PURDUE-USA-2015-0120131

PATIENT
  Sex: Male

DRUGS (2)
  1. OXYCODONE HCL TABLETS (RHODES 91-490) [Suspect]
     Active Substance: OXYCODONE HYDROCHLORIDE
     Indication: PAIN
     Dosage: 30 MG, Q4- 6H
     Route: 048
     Dates: start: 20150404
  2. OXYCODONE HCL TABLETS (RHODES 91-490) [Suspect]
     Active Substance: OXYCODONE HYDROCHLORIDE
     Indication: NECK PAIN

REACTIONS (2)
  - Anxiety [Unknown]
  - Inadequate analgesia [Not Recovered/Not Resolved]

NARRATIVE: CASE EVENT DATE: 20150404
